FAERS Safety Report 6913309-4 (Version None)
Quarter: 2010Q3

REPORT INFORMATION
  Report Type: 
  Country: None (occurrence: None)
  Receive Date: 20100809
  Receipt Date: 20100802
  Transmission Date: 20110219
  Serious: Yes (Other)
  Sender: FDA-Public Use
  Company Number: US-ASTRAZENECA-2007UW25294

PATIENT
  Age: 549 Month
  Sex: Female
  Weight: 75.7 kg

DRUGS (25)
  1. SEROQUEL [Suspect]
     Indication: BIPOLAR DISORDER
     Dosage: 200-600 MG
     Route: 048
     Dates: start: 20001206, end: 20040916
  2. SEROQUEL [Suspect]
     Dosage: STARTED WITH 25 MG
     Route: 048
     Dates: start: 20001206
  3. SEROQUEL [Suspect]
     Route: 048
     Dates: start: 20020919
  4. SEROQUEL [Suspect]
     Route: 048
     Dates: start: 20030220
  5. SEROQUEL [Suspect]
     Dosage: 300 MG
     Route: 048
     Dates: start: 20040923, end: 20050106
  6. SEROQUEL [Suspect]
     Dosage: 300-600 MG
     Route: 048
     Dates: start: 20050108
  7. SEROQUEL [Suspect]
     Route: 048
     Dates: start: 20060611
  8. ZYPREXA [Concomitant]
     Indication: BIPOLAR DISORDER
     Dosage: 10 MG
     Dates: start: 19990901, end: 20000908
  9. LITHIUM [Concomitant]
     Dosage: 300-900 MG
     Dates: start: 20000223, end: 20010117
  10. TEGRETOL [Concomitant]
     Dosage: 100 MG-400 MG
     Route: 048
     Dates: start: 20060611
  11. TOPAMAX [Concomitant]
     Dosage: 100 MG-200 MG
     Dates: start: 20020918
  12. LEXAPRO [Concomitant]
     Dates: start: 20041203
  13. REQUIP [Concomitant]
     Dates: start: 20060611
  14. GLUCOPHAGE [Concomitant]
     Dosage: 500 MG-1000 MG
     Dates: start: 20060611
  15. ATENOLOL [Concomitant]
     Dosage: 50 MG-100 MG
     Dates: start: 20020918
  16. TRICOR [Concomitant]
     Dates: start: 20020918
  17. MAXZIDE [Concomitant]
     Dates: start: 20020220
  18. NEXIUM [Concomitant]
     Indication: GASTROOESOPHAGEAL REFLUX DISEASE
     Dates: start: 20020918
  19. NEXIUM [Concomitant]
     Indication: HYPERTRIGLYCERIDAEMIA
     Dates: start: 20020918
  20. CELEXA [Concomitant]
     Route: 048
     Dates: start: 20020919
  21. PROTONIX [Concomitant]
     Route: 048
     Dates: start: 20020220
  22. RISPERDAL [Concomitant]
     Indication: BIPOLAR DISORDER
     Dosage: 1-3 MG
     Dates: start: 20000906, end: 20001206
  23. LAMICTAL [Concomitant]
     Dosage: 25-100 MG
     Dates: start: 20040602, end: 20050101
  24. DEPAKOTE [Concomitant]
     Dates: start: 19980101, end: 19990101
  25. TRILEPTAL [Concomitant]
     Dosage: 300 MG
     Dates: start: 20030702, end: 20040602

REACTIONS (27)
  - ANGINA PECTORIS [None]
  - ARTERIOSCLEROSIS CORONARY ARTERY [None]
  - ARTHRALGIA [None]
  - ARTHRITIS [None]
  - ASPIRATION JOINT [None]
  - BACK PAIN [None]
  - CARDIAC DISORDER [None]
  - CONSTIPATION [None]
  - CORONARY ANGIOPLASTY [None]
  - CORONARY ARTERY DISEASE [None]
  - DIABETES MELLITUS [None]
  - GASTROINTESTINAL DISORDER [None]
  - GASTROOESOPHAGEAL REFLUX DISEASE [None]
  - INTERVERTEBRAL DISC DISORDER [None]
  - INTERVERTEBRAL DISC DISPLACEMENT [None]
  - INTERVERTEBRAL DISC PROTRUSION [None]
  - MUSCLE INJURY [None]
  - NEUROPATHY PERIPHERAL [None]
  - OSTEOARTHRITIS [None]
  - OVERDOSE [None]
  - PAIN IN EXTREMITY [None]
  - RADICULOPATHY [None]
  - TREMOR [None]
  - TYPE 2 DIABETES MELLITUS [None]
  - UTERINE HAEMORRHAGE [None]
  - VISION BLURRED [None]
  - WEIGHT INCREASED [None]
